FAERS Safety Report 6296350-7 (Version None)
Quarter: 2009Q3

REPORT INFORMATION
  Report Type: 
  Country: None (occurrence: None)
  Receive Date: 20090803
  Receipt Date: 20090803
  Transmission Date: 20100115
  Serious: Yes (Other)
  Sender: FDA-Public Use
  Company Number: None

PATIENT
  Age: 50 Year
  Sex: Female
  Weight: 104.7809 kg

DRUGS (2)
  1. LEXAPRO [Suspect]
     Indication: HYPOTHYROIDISM
     Dosage: 1 TAB DAILY PO
     Route: 048
     Dates: start: 20080103, end: 20080214
  2. LEXAPRO [Suspect]
     Indication: MYOPATHY
     Dosage: 1 TAB DAILY PO
     Route: 048
     Dates: start: 20080103, end: 20080214

REACTIONS (2)
  - MENORRHAGIA [None]
  - WEIGHT INCREASED [None]
